FAERS Safety Report 9649425 (Version 2)
Quarter: 2014Q1

REPORT INFORMATION
  Report Type: Spontaneous
  Country: BE (occurrence: BE)
  Receive Date: 20131028
  Receipt Date: 20140106
  Transmission Date: 20141002
  Serious: Yes (Other)
  Sender: FDA-Public Use
  Company Number: BE-PFIZER INC-2013305500

PATIENT
  Age: 53 Year
  Sex: Male
  Weight: 74 kg

DRUGS (5)
  1. LIPITOR [Suspect]
     Dosage: UNK
     Route: 048
     Dates: start: 1994
  2. EZETROL [Concomitant]
     Dosage: UNK
  3. ASAFLOW [Concomitant]
     Dosage: UNK
  4. COVERSYL [Concomitant]
     Dosage: UNK
  5. PLAVIX [Concomitant]
     Dosage: UNK

REACTIONS (2)
  - Diabetes mellitus [Not Recovered/Not Resolved]
  - Arteriosclerosis coronary artery [Unknown]
